FAERS Safety Report 6204486-1 (Version None)
Quarter: 2009Q2

REPORT INFORMATION
  Report Type: 
  Country: None (occurrence: None)
  Receive Date: 20090527
  Receipt Date: 20090521
  Transmission Date: 20091009
  Serious: Yes (Other)
  Sender: FDA-Public Use
  Company Number: GB-PFIZER INC-2009203606

PATIENT

DRUGS (1)
  1. CHAMPIX [Suspect]
     Dosage: 0.5 MG, UNK

REACTIONS (5)
  - COORDINATION ABNORMAL [None]
  - FEELING ABNORMAL [None]
  - PALPITATIONS [None]
  - PARANOIA [None]
  - PSYCHOMOTOR HYPERACTIVITY [None]
